FAERS Safety Report 6558999-3 (Version None)
Quarter: 2010Q1

REPORT INFORMATION
  Report Type: 
  Country: None (occurrence: None)
  Receive Date: 20100129
  Receipt Date: 20100121
  Transmission Date: 20100710
  Serious: Yes (Other)
  Sender: FDA-Public Use
  Company Number: US-ELI_LILLY_AND_COMPANY-US201001005295

PATIENT
  Sex: Male

DRUGS (4)
  1. BYETTA [Suspect]
     Dosage: 10 UG, UNKNOWN
     Dates: start: 20051201, end: 20090801
  2. BYETTA [Suspect]
     Dosage: 10 UG, UNKNOWN
     Dates: end: 20091201
  3. AVANDAMET [Concomitant]
  4. PRAVASTATIN [Concomitant]

REACTIONS (1)
  - PANCREATITIS [None]
